FAERS Safety Report 9104152 (Version 1)
Quarter: 2013Q1

REPORT INFORMATION
  Report Type: Spontaneous
  Country: MX (occurrence: MX)
  Receive Date: 20130219
  Receipt Date: 20130219
  Transmission Date: 20140127
  Serious: Yes (Death)
  Sender: FDA-Public Use
  Company Number: PHHY2013MX015425

PATIENT
  Age: 80 Year
  Sex: Male

DRUGS (1)
  1. ONBREZ [Suspect]
     Indication: CHRONIC OBSTRUCTIVE PULMONARY DISEASE
     Dosage: 150 UG, DAILY

REACTIONS (4)
  - Cystic fibrosis lung [Fatal]
  - Cardiac disorder [Fatal]
  - Pneumonia [Fatal]
  - Influenza [Unknown]
